FAERS Safety Report 16535878 (Version 1)
Quarter: 2019Q3

REPORT INFORMATION
  Report Type: Spontaneous
  Country: US (occurrence: US)
  Receive Date: 20190705
  Receipt Date: 20190705
  Transmission Date: 20191004
  Serious: Yes (Hospitalization, Other)
  Sender: FDA-Public Use
  Company Number: US-MICRO LABS LIMITED-ML2019-01533

PATIENT
  Age: 34 Year
  Sex: Female

DRUGS (1)
  1. DIPHENHYDRAMINE HYDROCHLORIDE. [Suspect]
     Active Substance: DIPHENHYDRAMINE HYDROCHLORIDE

REACTIONS (7)
  - Electrocardiogram abnormal [Recovered/Resolved]
  - Seizure [Unknown]
  - Brain death [Not Recovered/Not Resolved]
  - Acute respiratory distress syndrome [Unknown]
  - Cardiac arrest [Unknown]
  - Vasoplegia syndrome [Unknown]
  - Overdose [Unknown]
